FAERS Safety Report 4285383-8 (Version None)
Quarter: 2004Q1

REPORT INFORMATION
  Report Type: 
  Country: None (occurrence: None)
  Receive Date: 20040202
  Receipt Date: 20040121
  Transmission Date: 20041129
  Serious: Yes (Other)
  Sender: FDA-Public Use
  Company Number: 2004195467TW

PATIENT
  Age: 34 Year
  Sex: Female

DRUGS (1)
  1. SOLU-MEDROL [Suspect]
     Indication: LUPUS NEPHRITIS
     Dosage: IV
     Route: 042

REACTIONS (4)
  - DRUG INEFFECTIVE [None]
  - HICCUPS [None]
  - INSOMNIA [None]
  - MARKEDLY REDUCED DIETARY INTAKE [None]
